FAERS Safety Report 17112868 (Version 2)
Quarter: 2019Q4

REPORT INFORMATION
  Report Type: Report from Study
  Country: US (occurrence: US)
  Receive Date: 20191204
  Receipt Date: 20191216
  Transmission Date: 20200122
  Serious: Yes (Other)
  Sender: FDA-Public Use
  Company Number: US-OTSUKA-2018_028285

PATIENT
  Age: 64 Year
  Sex: Female

DRUGS (1)
  1. DEXTROMETHORPHAN/QUINIDINE [Suspect]
     Active Substance: DEXTROMETHORPHAN HYDROBROMIDE\QUINIDINE SULFATE
     Indication: AFFECT LABILITY
     Dosage: 1 DF (20/10MG), BID (TWICE DAILY)
     Route: 048

REACTIONS (5)
  - Mobility decreased [Unknown]
  - Pneumonia bacterial [Unknown]
  - Loss of personal independence in daily activities [Unknown]
  - Abnormal behaviour [Unknown]
  - Gait disturbance [Unknown]

NARRATIVE: CASE EVENT DATE: 20180506
